FAERS Safety Report 8532456-7 (Version None)
Quarter: 2012Q3

REPORT INFORMATION
  Report Type: 
  Country: None (occurrence: None)
  Receive Date: 20120716
  Receipt Date: 20120716
  Transmission Date: 20120928
  Serious: Yes (Disabling, Other)
  Sender: FDA-Public Use
  Company Number: None

PATIENT
  Sex: Female
  Weight: 65.7716 kg

DRUGS (2)
  1. IBUPROFEN [Suspect]
     Indication: BURSITIS
     Dosage: 200MG-600MG 3 TIMES A DAY PO
     Route: 048
     Dates: start: 20101008, end: 20111009
  2. ACETAMINOPHEN [Suspect]
     Dosage: 325MG 2 TIMES A DAY PO
     Route: 048

REACTIONS (40)
  - EMOTIONAL DISORDER [None]
  - MUSCLE SPASMS [None]
  - MUSCLE TIGHTNESS [None]
  - DIZZINESS [None]
  - MUSCULOSKELETAL STIFFNESS [None]
  - NAUSEA [None]
  - DEPRESSION [None]
  - CONDITION AGGRAVATED [None]
  - PSYCHOTIC DISORDER [None]
  - BONE MARROW OEDEMA [None]
  - SINUS HEADACHE [None]
  - MEMORY IMPAIRMENT [None]
  - AGITATION [None]
  - FEELING JITTERY [None]
  - ANXIETY [None]
  - SINUS DISORDER [None]
  - EYE PAIN [None]
  - FORMICATION [None]
  - IMPAIRED DRIVING ABILITY [None]
  - MENTAL DISORDER [None]
  - INSOMNIA [None]
  - GASTROOESOPHAGEAL REFLUX DISEASE [None]
  - BACK PAIN [None]
  - FACIAL PAIN [None]
  - MUSCLE TWITCHING [None]
  - DYSKINESIA [None]
  - RESPIRATORY DISORDER [None]
  - TINNITUS [None]
  - VIBRATORY SENSE INCREASED [None]
  - GASTROINTESTINAL DISORDER [None]
  - HYPOPHAGIA [None]
  - NECK PAIN [None]
  - PRURITUS [None]
  - MUSCULOSKELETAL PAIN [None]
  - GAIT DISTURBANCE [None]
  - VISUAL IMPAIRMENT [None]
  - OBSESSIVE-COMPULSIVE DISORDER [None]
  - ACTIVITIES OF DAILY LIVING IMPAIRED [None]
  - COGNITIVE DISORDER [None]
  - EAR PAIN [None]
